FAERS Safety Report 14635401 (Version 1)
Quarter: 2018Q1

REPORT INFORMATION
  Report Type: Spontaneous
  Country: US (occurrence: US)
  Receive Date: 20180314
  Receipt Date: 20180314
  Transmission Date: 20180509
  Serious: No
  Sender: FDA-Public Use
  Company Number: US-ASTRAZENECA-2018SE19665

PATIENT
  Age: 752 Month
  Sex: Female
  Weight: 43.5 kg

DRUGS (6)
  1. ZYRTEC [Concomitant]
     Active Substance: CETIRIZINE HYDROCHLORIDE
     Indication: MULTIPLE ALLERGIES
     Route: 048
  2. SYMBICORT [Suspect]
     Active Substance: BUDESONIDE\FORMOTEROL FUMARATE DIHYDRATE
     Indication: RADIATION PNEUMONITIS
     Dosage: 160/4.5 MCG, 2 PUFFS TWICE DAILY
     Route: 055
     Dates: start: 20180113
  3. PRESERVISION WITH ARD [Concomitant]
     Indication: PROPHYLAXIS
     Route: 048
  4. SYMBICORT [Suspect]
     Active Substance: BUDESONIDE\FORMOTEROL FUMARATE DIHYDRATE
     Indication: ASTHMA
     Dosage: 160/4.5 MCG, 2 PUFFS TWICE DAILY
     Route: 055
     Dates: start: 20180113
  5. MUCINEX ER OTC [Concomitant]
     Indication: COUGH
     Route: 048
     Dates: start: 20170407
  6. VORICONAZOLE. [Concomitant]
     Active Substance: VORICONAZOLE
     Indication: ANTIFUNGAL TREATMENT
     Route: 048

REACTIONS (5)
  - Chest pain [Unknown]
  - Condition aggravated [Unknown]
  - Productive cough [Unknown]
  - Off label use of device [Unknown]
  - Device failure [Unknown]

NARRATIVE: CASE EVENT DATE: 201704
